FAERS Safety Report 8588895-1 (Version None)
Quarter: 2012Q3

REPORT INFORMATION
  Report Type: 
  Country: None (occurrence: None)
  Receive Date: 20120813
  Receipt Date: 20120809
  Transmission Date: 20120928
  Serious: Yes (Hospitalization, Other)
  Sender: FDA-Public Use
  Company Number: US-PFIZER INC-2012194999

PATIENT
  Age: 48 Year
  Sex: Female
  Weight: 80.7 kg

DRUGS (5)
  1. NORVASC [Suspect]
     Indication: HYPERTENSION
     Dosage: 5 MG, DAILY
     Route: 048
  2. LOVENOX [Concomitant]
     Dosage: 40 MG, UNK
  3. ACETAMINOPHEN AND HYDROCODONE BITARTRATE [Concomitant]
     Dosage: 5/500 MG, UNK
  4. IBUPROFEN [Concomitant]
     Dosage: 800 MG, UNK
  5. ACCURETIC [Suspect]
     Indication: HYPERTENSION
     Dosage: 10/12.5 MG, DAILY
     Route: 048

REACTIONS (2)
  - ANKLE FRACTURE [None]
  - FALL [None]
